FAERS Safety Report 4395544-5 (Version None)
Quarter: 2004Q3

REPORT INFORMATION
  Report Type: 
  Country: None (occurrence: None)
  Receive Date: 20040713
  Receipt Date: 20040609
  Transmission Date: 20050211
  Serious: Yes (Other)
  Sender: FDA-Public Use
  Company Number: 200414479US

PATIENT
  Sex: Female
  Weight: 91 kg

DRUGS (11)
  1. LANTUS [Suspect]
     Indication: DIABETES MELLITUS NON-INSULIN-DEPENDENT
     Dosage: DOSE UNIT: UNITS
     Dates: start: 20040101
  2. UNKNOWN DRUG [Suspect]
     Dosage: DOSE: UNK
  3. SYNTHROID [Concomitant]
     Indication: HYPOTHYROIDISM
     Dosage: DOSE: UNKNOWN
  4. AVANDIA [Concomitant]
     Indication: DIABETES MELLITUS NON-INSULIN-DEPENDENT
     Dosage: DOSE: UNKNOWN
  5. TOPROL-XL [Concomitant]
     Indication: HYPERTENSION
     Dosage: DOSE: UNKNOWN
  6. LIPITOR [Concomitant]
     Indication: BLOOD CHOLESTEROL INCREASED
     Dosage: DOSE: UNKNOWN
  7. VERAPAMIL [Concomitant]
     Indication: HYPERTENSION
     Dosage: DOSE: UNKNOWN
  8. DIOVAN [Concomitant]
     Indication: HYPERTENSION
     Dosage: DOSE: UNKNOWN
  9. HYDROCHLOROTHIAZIDE [Concomitant]
     Dosage: DOSE: UNKNOWN
  10. ASPIRIN [Concomitant]
     Dosage: DOSE: UNKNOWN
  11. VITAMIN E [Concomitant]
     Dosage: DOSE: UNKNOWN

REACTIONS (2)
  - BLOOD GLUCOSE INCREASED [None]
  - LOSS OF CONSCIOUSNESS [None]
